FAERS Safety Report 4389161-0 (Version None)
Quarter: 2004Q3

REPORT INFORMATION
  Report Type: 
  Country: None (occurrence: None)
  Receive Date: 20040702
  Receipt Date: 20040625
  Transmission Date: 20050211
  Serious: Yes (Other)
  Sender: FDA-Public Use
  Company Number: 200416433GDDC

PATIENT
  Age: 63 Year
  Sex: Male

DRUGS (7)
  1. RIFAMPICIN [Suspect]
     Indication: IMPLANT SITE INFECTION
     Dosage: DOSE: UNK
  2. VANCOMYCIN [Suspect]
     Indication: IMPLANT SITE INFECTION
     Dosage: DOSE: UNK
  3. DILTIAZEM [Concomitant]
  4. ATORVASTATIN CALCIUM [Concomitant]
  5. ACETAMINOPHEN [Concomitant]
  6. LISINOPRIL [Concomitant]
  7. TEMAZEPAM [Concomitant]

REACTIONS (12)
  - ACUTE GENERALISED EXANTHEMATOUS PUSTULOSIS [None]
  - ANURIA [None]
  - BLOOD CREATININE INCREASED [None]
  - BLOOD PRESSURE DIASTOLIC DECREASED [None]
  - C-REACTIVE PROTEIN INCREASED [None]
  - CHILLS [None]
  - EXANTHEM [None]
  - HYPOTENSION [None]
  - NEUTROPHIL COUNT INCREASED [None]
  - SEPTIC SHOCK [None]
  - SKIN TEST POSITIVE [None]
  - WHITE BLOOD CELL COUNT INCREASED [None]
